FAERS Safety Report 23099280 (Version 1)
Quarter: 2023Q4

REPORT INFORMATION
  Report Type: Spontaneous
  Country: US (occurrence: US)
  Receive Date: 20231024
  Receipt Date: 20231024
  Transmission Date: 20240110
  Serious: Yes (Hospitalization, Other)
  Sender: FDA-Public Use
  Company Number: US-ALEMBIC PHARMACUETICALS LIMITED-2023SCAL000953

PATIENT

DRUGS (4)
  1. PREGABALIN [Suspect]
     Active Substance: PREGABALIN
     Indication: Fibromyalgia
     Dosage: UNK
     Route: 065
  2. SUBOXONE [Suspect]
     Active Substance: BUPRENORPHINE HYDROCHLORIDE\NALOXONE HYDROCHLORIDE
     Indication: Drug use disorder
     Dosage: UNK
     Route: 065
  3. AMITRIPTYLINE [Suspect]
     Active Substance: AMITRIPTYLINE
     Indication: Major depression
     Dosage: UNK
     Route: 065
  4. FENTANYL [Concomitant]
     Active Substance: FENTANYL\FENTANYL CITRATE
     Indication: Analgesic therapy
     Dosage: UNK
     Route: 065

REACTIONS (11)
  - Serotonin syndrome [Recovering/Resolving]
  - Mental impairment [Recovering/Resolving]
  - Mental status changes [Recovering/Resolving]
  - Fall [Unknown]
  - Hyperthermia [Recovered/Resolved]
  - Tachycardia [Unknown]
  - Flushing [Unknown]
  - Hyperhidrosis [Unknown]
  - Hyperreflexia [Unknown]
  - Myoclonus [Unknown]
  - Drug interaction [Unknown]
